FAERS Safety Report 9967510 (Version 1)
Quarter: 2014Q1

REPORT INFORMATION
  Report Type: Report from Study
  Country: US (occurrence: US)
  Receive Date: 20140305
  Receipt Date: 20140305
  Transmission Date: 20141002
  Serious: No
  Sender: FDA-Public Use
  Company Number: US-ABBVIE-13P-163-1138532-00

PATIENT
  Age: 63 Year
  Sex: Female

DRUGS (7)
  1. HUMIRA [Suspect]
     Indication: CROHN^S DISEASE
     Dates: start: 20130125
  2. METHOTREXATE [Concomitant]
     Indication: ARTHRITIS
     Dosage: 4 TABLETS EVERY WEEK
  3. PROTONIX [Concomitant]
     Indication: GASTROOESOPHAGEAL REFLUX DISEASE
  4. FOLIC ACID [Concomitant]
     Indication: VITAMIN SUPPLEMENTATION
  5. METHOTREXATE [Concomitant]
     Indication: PAIN
  6. NOVOLOG [Concomitant]
     Indication: DIABETES MELLITUS
     Dosage: FLEXPEN SLIDING SCALE
  7. B12 [Concomitant]
     Indication: VITAMIN B12 DECREASED

REACTIONS (3)
  - Device malfunction [Recovered/Resolved]
  - Incorrect dose administered [Recovered/Resolved]
  - Injection site nodule [Recovered/Resolved]
